FAERS Safety Report 9808695 (Version 1)
Quarter: 2014Q1

REPORT INFORMATION
  Report Type: Spontaneous
  Country: US (occurrence: US)
  Receive Date: 20140110
  Receipt Date: 20140110
  Transmission Date: 20141002
  Serious: Yes (Death, Hospitalization)
  Sender: FDA-Public Use
  Company Number: US-B.I. PHARMACEUTICALS,INC./RIDGEFIELD-2014-BI-01103BP

PATIENT
  Sex: Male

DRUGS (1)
  1. PRADAXA [Suspect]
     Indication: ATRIAL FIBRILLATION
     Dates: start: 20110427

REACTIONS (9)
  - Gastrointestinal haemorrhage [Fatal]
  - Haemorrhage [Fatal]
  - Anaemia [Fatal]
  - Respiratory failure [Fatal]
  - Shock [Fatal]
  - Bacteraemia [Fatal]
  - Aspiration [Fatal]
  - Hypotension [Fatal]
  - Renal failure [Fatal]
